FAERS Safety Report 7619056 (Version 3)
Quarter: 2012Q4

REPORT INFORMATION
  Report Type: 
  Country: US (occurrence: US)
  Receive Date: 20101006
  Receipt Date: 20121015
  Transmission Date: 20130627
  Serious: No
  Sender: FDA-Public Use
  Company Number: US-BRISTOL-MYERS SQUIBB COMPANY-15220791

PATIENT

DRUGS (1)
  1. KENALOG-40 INJ [Suspect]

REACTIONS (1)
  - Circumstance or information capable of leading to medication error [Unknown]
